FAERS Safety Report 12464510 (Version 1)
Quarter: 2016Q2

REPORT INFORMATION
  Report Type: Spontaneous
  Country: US (occurrence: US)
  Receive Date: 20160614
  Receipt Date: 20160614
  Transmission Date: 20160815
  Serious: No
  Sender: FDA-Public Use
  Company Number: US-BAUSCH-BL-2016-010134

PATIENT
  Sex: Female
  Weight: 81.72 kg

DRUGS (2)
  1. ADDYI [Suspect]
     Active Substance: FLIBANSERIN
     Indication: NERVE INJURY
  2. ADDYI [Suspect]
     Active Substance: FLIBANSERIN
     Indication: SEXUAL DYSFUNCTION
     Route: 065
     Dates: start: 201603

REACTIONS (2)
  - Drug ineffective for unapproved indication [Unknown]
  - Off label use [Unknown]
